FAERS Safety Report 6463719-7 (Version None)
Quarter: 2009Q4

REPORT INFORMATION
  Report Type: 
  Country: None (occurrence: None)
  Receive Date: 20091123
  Receipt Date: 20091109
  Transmission Date: 20100525
  Serious: Yes (Hospitalization)
  Sender: FDA-Public Use
  Company Number: 002385

PATIENT

DRUGS (18)
  1. NEUPRO [Suspect]
     Indication: PARKINSON'S DISEASE
     Dosage: SEE IMAGE
     Dates: start: 20080604, end: 20080608
  2. NEUPRO [Suspect]
     Indication: PARKINSON'S DISEASE
     Dosage: SEE IMAGE
     Dates: start: 20080603, end: 20080619
  3. NEUPRO [Suspect]
     Indication: PARKINSON'S DISEASE
     Dosage: SEE IMAGE
     Dates: start: 20080623, end: 20081102
  4. NEUPRO [Suspect]
     Indication: PARKINSON'S DISEASE
     Dosage: SEE IMAGE
     Dates: start: 20081103, end: 20081109
  5. NEUPRO [Suspect]
     Indication: PARKINSON'S DISEASE
     Dosage: SEE IMAGE
     Dates: start: 20081110, end: 20081116
  6. NEUPRO [Suspect]
     Indication: PARKINSON'S DISEASE
     Dosage: SEE IMAGE
     Dates: start: 20090613, end: 20090622
  7. NEUPRO [Suspect]
     Indication: PARKINSON'S DISEASE
     Dosage: SEE IMAGE
     Dates: start: 20081117
  8. LORATADINE [Suspect]
     Dosage: (50 MG QD), (50 MG BID), (50 MG TID)
     Dates: start: 20081104, end: 20081108
  9. LORATADINE [Suspect]
     Dosage: (50 MG QD), (50 MG BID), (50 MG TID)
     Dates: start: 20081109, end: 20081110
  10. LORATADINE [Suspect]
     Dosage: (50 MG QD), (50 MG BID), (50 MG TID)
     Dates: start: 20081111
  11. PRIMIDONE (PRIMIDON) [Suspect]
     Dosage: (62.5 MG QD), (62.5 MG BID), (62.5 MG TABLETS TWICE INN THE MORNING AND ONCE IN THE EVENING)
     Dates: start: 20080707, end: 20080708
  12. PRIMIDONE (PRIMIDON) [Suspect]
     Dosage: (62.5 MG QD), (62.5 MG BID), (62.5 MG TABLETS TWICE INN THE MORNING AND ONCE IN THE EVENING)
     Dates: start: 20080709, end: 20080709
  13. PRIMIDONE (PRIMIDON) [Suspect]
     Dosage: (62.5 MG QD), (62.5 MG BID), (62.5 MG TABLETS TWICE INN THE MORNING AND ONCE IN THE EVENING)
     Dates: start: 20080710, end: 20080901
  14. PRIMIDONE (PRIMIDON) [Suspect]
     Dosage: (62.5 MG QD), (62.5 MG BID), (62.5 MG TABLETS TWICE INN THE MORNING AND ONCE IN THE EVENING)
     Dates: start: 20080901, end: 20081103
  15. PRIMIDONE (PRIMIDON) [Suspect]
     Dosage: (62.5 MG QD), (62.5 MG BID), (62.5 MG TABLETS TWICE INN THE MORNING AND ONCE IN THE EVENING)
     Dates: start: 20081104, end: 20081110
  16. PRIMIDONE (PRIMIDON) [Suspect]
     Dosage: (62.5 MG QD), (62.5 MG BID), (62.5 MG TABLETS TWICE INN THE MORNING AND ONCE IN THE EVENING)
     Dates: start: 20081111
  17. SELEGILINE (SELEGELIN) [Suspect]
     Dosage: (5 MG QD)
     Dates: start: 20081114
  18. AZILECT [Suspect]
     Dosage: (1 MG QD)
     Dates: start: 20080606, end: 20081113

REACTIONS (2)
  - CONDITION AGGRAVATED [None]
  - PARKINSON'S DISEASE [None]
